FAERS Safety Report 18497654 (Version 4)
Quarter: 2022Q4

REPORT INFORMATION
  Report Type: Spontaneous
  Country: ES (occurrence: ES)
  Receive Date: 20201112
  Receipt Date: 20221017
  Transmission Date: 20230113
  Serious: Yes (Other)
  Sender: FDA-Public Use
  Company Number: ES-ROCHE-2704411

PATIENT
  Age: 43 Year
  Sex: Female

DRUGS (1)
  1. TRASTUZUMAB [Suspect]
     Active Substance: TRASTUZUMAB
     Indication: HER2 positive breast cancer
     Dosage: UNK(MAINTENANCE TREATMENT AT STANDARD DOSES)
     Route: 058
     Dates: start: 201704

REACTIONS (3)
  - Autoimmune hypothyroidism [Unknown]
  - Off label use [Unknown]
  - Product use issue [Unknown]
